FAERS Safety Report 7494556-2 (Version None)
Quarter: 2011Q2

REPORT INFORMATION
  Report Type: 
  Country: None (occurrence: None)
  Receive Date: 20110520
  Receipt Date: 20110517
  Transmission Date: 20111010
  Serious: Yes (Death, Other)
  Sender: FDA-Public Use
  Company Number: PHHY2011US31863

PATIENT
  Sex: Male
  Weight: 65.5 kg

DRUGS (14)
  1. ZINC SULFATE [Concomitant]
     Dosage: 50 MG, UNK
  2. VITAMIN D [Concomitant]
     Dosage: 1000 IU, UNK
  3. DETROL [Concomitant]
  4. EXJADE [Suspect]
     Indication: LEUKAEMIA
     Dosage: 500 MG, QD
     Route: 048
     Dates: start: 20110311
  5. HUMALOG [Concomitant]
  6. SIMVASTATIN [Concomitant]
  7. CALCIUM CARBONATE [Concomitant]
     Dosage: 500 MG, UNK
  8. AVAPRO [Concomitant]
     Dosage: 300 MG, UNK
  9. VITAMIN C [Concomitant]
     Dosage: 500 MG, UNK
  10. EXJADE [Suspect]
     Indication: MYELODYSPLASTIC SYNDROME
     Dosage: 1000 MG, QD
     Route: 048
     Dates: start: 20110123, end: 20110310
  11. LANTUS [Concomitant]
  12. NORVASC [Concomitant]
     Dosage: 5 MG, UNK
  13. SODIUM BICARBONATE [Concomitant]
     Dosage: 650 MG, UNK
  14. AMLODIPINE [Concomitant]
     Indication: HYPERTENSION
     Dosage: 10 MG, UNK
     Route: 048

REACTIONS (6)
  - DEATH [None]
  - NAUSEA [None]
  - HAEMOGLOBIN DECREASED [None]
  - HAEMATOCRIT DECREASED [None]
  - FATIGUE [None]
  - VOMITING [None]
